FAERS Safety Report 8429607-1 (Version None)
Quarter: 2012Q2

REPORT INFORMATION
  Report Type: 
  Country: None (occurrence: None)
  Receive Date: 20120612
  Receipt Date: 20120601
  Transmission Date: 20120825
  Serious: Yes (Hospitalization)
  Sender: FDA-Public Use
  Company Number: JP-VERTEX PHARMACEUTICALS INC.-AE-2012-008485

PATIENT
  Age: 63 Year
  Sex: Male

DRUGS (10)
  1. REBETOL [Concomitant]
     Route: 048
     Dates: start: 20120522
  2. LANSOPRAZOLE [Concomitant]
     Route: 048
  3. PEGINTERFERON ALFA-2B [Concomitant]
     Route: 051
     Dates: start: 20120410
  4. REBETOL [Concomitant]
     Indication: HEPATITIS C
     Route: 048
     Dates: start: 20120410, end: 20120430
  5. REBETOL [Concomitant]
     Route: 048
     Dates: start: 20120501, end: 20120521
  6. METFORMIN HCL [Concomitant]
     Route: 048
  7. TELAVIC (TELAPREVIR) [Suspect]
     Indication: HEPATITIS C
     Route: 048
     Dates: start: 20120410, end: 20120412
  8. NORVASC [Concomitant]
     Route: 048
  9. JANUVIA [Concomitant]
     Route: 048
  10. TELAVIC (TELAPREVIR) [Suspect]
     Route: 048
     Dates: start: 20120413

REACTIONS (1)
  - LOSS OF CONSCIOUSNESS [None]
